FAERS Safety Report 6788296-2 (Version None)
Quarter: 2010Q2

REPORT INFORMATION
  Report Type: 
  Country: None (occurrence: None)
  Receive Date: 20100621
  Receipt Date: 20100614
  Transmission Date: 20101027
  Serious: Yes (Other)
  Sender: FDA-Public Use
  Company Number: CL-142-2010

PATIENT
  Age: 27 Year
  Sex: Female

DRUGS (6)
  1. CIPROFLOXACIN IN DEXTROSE 5% [Suspect]
     Dosage: INTRAVENOUS
     Route: 042
     Dates: start: 20100201, end: 20100201
  2. SODIUM CHLORIDE 0.9% IN PLASTIC CONTAINER [Suspect]
     Dosage: 5 ML/HR INTRAVENOUS
     Route: 042
     Dates: start: 20100201, end: 20100201
  3. MIDAZOLAM HYDROCHLORIDE [Suspect]
     Dates: start: 20100201
  4. INSULIN [Suspect]
     Dates: start: 20100201
  5. FENTANYL CITRATE UNK [Suspect]
     Dates: start: 20100201, end: 20100201
  6. MEROPENEM [Suspect]
     Dates: start: 20100201, end: 20100201

REACTIONS (5)
  - CONDITION AGGRAVATED [None]
  - DEVICE MALFUNCTION [None]
  - INCORRECT ROUTE OF DRUG ADMINISTRATION [None]
  - PULSE ABSENT [None]
  - SKIN DISCOLOURATION [None]
